FAERS Safety Report 17055458 (Version 2)
Quarter: 2019Q4

REPORT INFORMATION
  Report Type: Spontaneous
  Country: US (occurrence: US)
  Receive Date: 20191120
  Receipt Date: 20191121
  Transmission Date: 20200122
  Serious: Yes (Hospitalization)
  Sender: FDA-Public Use
  Company Number: US-TEVA-2019-US-1139056

PATIENT
  Age: 34 Year
  Sex: Female

DRUGS (2)
  1. LETAIRIS [Suspect]
     Active Substance: AMBRISENTAN
     Route: 065
  2. TADALAFIL. [Suspect]
     Active Substance: TADALAFIL
     Route: 065

REACTIONS (4)
  - Pericardial effusion [Unknown]
  - Cardiac disorder [Unknown]
  - Abdominal distension [Unknown]
  - Dyspnoea [Unknown]
